FAERS Safety Report 6182745-9 (Version None)
Quarter: 2009Q2

REPORT INFORMATION
  Report Type: 
  Country: None (occurrence: None)
  Receive Date: 20090507
  Receipt Date: 20090313
  Transmission Date: 20091009
  Serious: Yes (Life-Threatening, Hospitalization, Other)
  Sender: FDA-Public Use
  Company Number: GB-GILEAD-2004-06823

PATIENT
  Sex: Female
  Weight: 25.5 kg

DRUGS (4)
  1. VIREAD [Suspect]
     Indication: HIV INFECTION
     Route: 048
     Dates: start: 20011001, end: 20040224
  2. DIDANOSINE [Suspect]
     Indication: HIV INFECTION
     Route: 048
     Dates: start: 20011001, end: 20040224
  3. KALETRA [Concomitant]
     Route: 048
     Dates: start: 20011001, end: 20040224
  4. SEPTRIN [Concomitant]
     Dates: start: 19971001

REACTIONS (4)
  - FAILURE TO THRIVE [None]
  - HEPATIC STEATOSIS [None]
  - PANCREATITIS [None]
  - RENAL TUBULAR DISORDER [None]
